FAERS Safety Report 16658020 (Version 1)
Quarter: 2019Q3

REPORT INFORMATION
  Report Type: Spontaneous
  Country: US (occurrence: US)
  Receive Date: 20190801
  Receipt Date: 20190801
  Transmission Date: 20191004
  Serious: Yes (Hospitalization)
  Sender: FDA-Public Use
  Company Number: US-SUNOVION-2019SUN003151

PATIENT
  Age: 61 Year
  Sex: Male

DRUGS (1)
  1. BROVANA [Suspect]
     Active Substance: ARFORMOTEROL TARTRATE
     Dosage: 15 MCG/2 ML, BID
     Route: 055

REACTIONS (2)
  - Lung disorder [Unknown]
  - Product dose omission [Unknown]
